FAERS Safety Report 4927754-X (Version None)
Quarter: 2006Q1

REPORT INFORMATION
  Report Type: 
  Country: None (occurrence: None)
  Receive Date: 20060228
  Receipt Date: 20050112
  Transmission Date: 20060701
  Serious: No
  Sender: FDA-Public Use
  Company Number: US-GLAXOSMITHKLINE-A0540451A

PATIENT
  Age: 37 Year
  Sex: Female

DRUGS (3)
  1. ZIAGEN [Suspect]
     Indication: HIV INFECTION
     Dosage: 1TAB TWICE PER DAY
     Route: 048
     Dates: start: 20030101, end: 20050107
  2. VIREAD [Concomitant]
  3. SUSTIVA [Concomitant]

REACTIONS (3)
  - ABDOMINAL PAIN UPPER [None]
  - HYPERCHLORHYDRIA [None]
  - NAUSEA [None]
